FAERS Safety Report 7842236 (Version 11)
Quarter: 2013Q3

REPORT INFORMATION
  Report Type: Report from Study
  Country: CA (occurrence: CA)
  Receive Date: 20110304
  Receipt Date: 20130913
  Transmission Date: 20140515
  Serious: Yes (Hospitalization, Other)
  Sender: FDA-Public Use
  Company Number: CA-JNJFOC-20100301308

PATIENT
  Age: 55 Year
  Sex: Male
  Weight: 86.18 kg

DRUGS (11)
  1. STELARA [Suspect]
     Indication: PSORIASIS
     Route: 058
     Dates: end: 20101028
  2. STELARA [Suspect]
     Indication: PSORIASIS
     Route: 058
     Dates: start: 20100121
  3. STELARA [Suspect]
     Indication: PSORIASIS
     Route: 058
     Dates: start: 20090629
  4. STELARA [Suspect]
     Indication: PSORIASIS
     Route: 058
     Dates: start: 200907
  5. STELARA [Suspect]
     Indication: PSORIASIS
     Route: 058
     Dates: start: 200910
  6. TEGRETOL [Concomitant]
     Indication: CONVULSION PROPHYLAXIS
  7. AGGRENOX [Concomitant]
     Indication: ANTICOAGULANT THERAPY
     Route: 048
  8. BLOOD THINNERS [Concomitant]
  9. VARENICLINE [Concomitant]
  10. ANTI-SEIZURE MEDICATION [Concomitant]
  11. DOVONEX [Concomitant]
     Route: 061

REACTIONS (6)
  - B-cell lymphoma [Recovered/Resolved with Sequelae]
  - Nasopharyngitis [Not Recovered/Not Resolved]
  - Musculoskeletal stiffness [Unknown]
  - Pyrexia [Unknown]
  - Cough [Not Recovered/Not Resolved]
  - Dysphagia [Unknown]
